FAERS Safety Report 6280713-X (Version None)
Quarter: 2009Q3

REPORT INFORMATION
  Report Type: 
  Country: None (occurrence: None)
  Receive Date: 20090724
  Receipt Date: 20090318
  Transmission Date: 20100115
  Serious: Yes (Other)
  Sender: FDA-Public Use
  Company Number: A0758210A

PATIENT
  Age: 55 Year
  Sex: Male
  Weight: 135.9 kg

DRUGS (3)
  1. AVANDIA [Suspect]
     Route: 065
     Dates: start: 20001222, end: 20050901
  2. GLUCOPHAGE [Concomitant]
     Dates: start: 19951001, end: 20050901
  3. METFORMIN HCL [Concomitant]
     Dates: start: 20031201, end: 20050901

REACTIONS (1)
  - CARDIAC FAILURE CONGESTIVE [None]
